FAERS Safety Report 8007242-7 (Version None)
Quarter: 2011Q4

REPORT INFORMATION
  Report Type: 
  Country: None (occurrence: None)
  Receive Date: 20111227
  Receipt Date: 20111219
  Transmission Date: 20120403
  Serious: Yes (Hospitalization, Other)
  Sender: FDA-Public Use
  Company Number: FR-B.I. PHARMACEUTICALS,INC./RIDGEFIELD-2011-FF-01199FF

PATIENT
  Age: 84 Year
  Sex: Male

DRUGS (8)
  1. AMLODIPINE BESYLATE [Concomitant]
  2. ANDROCUR [Concomitant]
  3. EXELON [Concomitant]
  4. CRESTOR [Concomitant]
  5. BISOPROLOL FUMARATE [Concomitant]
  6. PRADAXA [Suspect]
     Route: 048
     Dates: end: 20110625
  7. ASPIRIN [Concomitant]
  8. PERINDOPRIL ERBUMINE [Concomitant]

REACTIONS (5)
  - DEHYDRATION [None]
  - PROTHROMBIN LEVEL DECREASED [None]
  - INTERNATIONAL NORMALISED RATIO INCREASED [None]
  - RENAL FAILURE ACUTE [None]
  - RECTAL HAEMORRHAGE [None]
